FAERS Safety Report 13853617 (Version 1)
Quarter: 2017Q3

REPORT INFORMATION
  Report Type: Not Available
  Country: US (occurrence: US)
  Receive Date: 20170810
  Receipt Date: 20170810
  Transmission Date: 20171127
  Serious: Yes (Other)
  Sender: FDA-Public Use
  Company Number: US-IDTAUSTRALIA-2017-US-008833

PATIENT
  Age: 92 Year
  Sex: Female

DRUGS (1)
  1. FLECAINIDE ACETATE (NON-SPECIFIC) [Suspect]
     Active Substance: FLECAINIDE ACETATE

REACTIONS (7)
  - Acute kidney injury [Unknown]
  - Metabolic acidosis [Unknown]
  - Hypotension [Recovered/Resolved]
  - Atrial fibrillation [Recovered/Resolved]
  - Bradycardia [Recovered/Resolved]
  - Toxicity to various agents [Unknown]
  - Electrocardiogram QRS complex prolonged [Unknown]
